FAERS Safety Report 5109054-0 (Version None)
Quarter: 2006Q3

REPORT INFORMATION
  Report Type: 
  Country: None (occurrence: None)
  Receive Date: 20060731
  Receipt Date: 20060507
  Transmission Date: 20061208
  Serious: No
  Sender: FDA-Public Use
  Company Number: 2006PV013352

PATIENT
  Age: 53 Year
  Sex: Female
  Weight: 82.1011 kg

DRUGS (1)
  1. BYETTA [Suspect]
     Indication: DIABETES MELLITUS NON-INSULIN-DEPENDENT
     Dosage: 5 MCG;BID;SC
     Route: 058
     Dates: start: 20060501

REACTIONS (2)
  - SENSITIVITY OF TEETH [None]
  - VISION BLURRED [None]
